FAERS Safety Report 7829534-4 (Version None)
Quarter: 2011Q4

REPORT INFORMATION
  Report Type: 
  Country: None (occurrence: None)
  Receive Date: 20111020
  Receipt Date: 20111012
  Transmission Date: 20120403
  Serious: Yes (Hospitalization)
  Sender: FDA-Public Use
  Company Number: JP-MERCK-1109USA01679

PATIENT
  Age: 72 Year
  Sex: Female
  Weight: 45 kg

DRUGS (17)
  1. REBETOL [Concomitant]
     Indication: CRYOGLOBULINAEMIA
     Route: 048
     Dates: start: 20090810
  2. RABEPRAZOLE SODIUM [Concomitant]
     Route: 048
  3. FOSAMAX [Suspect]
     Indication: OSTEOPOROSIS
     Route: 048
     Dates: start: 20090813, end: 20091106
  4. DIOVAN [Concomitant]
     Indication: HYPERTENSION
     Route: 048
     Dates: start: 20090609
  5. PREDNISOLONE [Concomitant]
     Indication: CRYOGLOBULINAEMIA
     Route: 048
     Dates: start: 20090630
  6. PEG-INTRON [Concomitant]
     Indication: HEPATITIS C
     Route: 058
  7. ENALAPRIL MALEATE [Concomitant]
     Indication: HYPERTENSION
     Route: 048
     Dates: start: 20090604
  8. FERROUS SULFATE TAB [Concomitant]
     Indication: ANAEMIA
     Route: 048
     Dates: start: 20090806
  9. SELBEX [Concomitant]
     Indication: GASTRITIS
     Route: 048
     Dates: start: 20090630
  10. REBETOL [Concomitant]
     Indication: HEPATITIS C
     Route: 048
     Dates: start: 20090810
  11. PEG-INTRON [Concomitant]
     Indication: CRYOGLOBULINAEMIA
     Route: 058
  12. ADALAT [Concomitant]
     Indication: HYPERTENSION
     Route: 048
     Dates: start: 20090616
  13. OLMESARTAN MEDOXOMIL [Concomitant]
     Route: 048
  14. URSO 250 [Concomitant]
     Indication: CHRONIC HEPATITIS
     Route: 048
     Dates: start: 20090604
  15. VANCOMIN [Concomitant]
     Indication: CHRONIC HEPATITIS
     Route: 065
     Dates: start: 20090620
  16. MUCODYNE [Concomitant]
     Route: 048
  17. NORVASC [Concomitant]
     Indication: HYPERTENSION
     Route: 048
     Dates: start: 20090604

REACTIONS (1)
  - OSTEOMYELITIS [None]
